FAERS Safety Report 6347726-0 (Version None)
Quarter: 2009Q3

REPORT INFORMATION
  Report Type: 
  Country: None (occurrence: None)
  Receive Date: 20090910
  Receipt Date: 20090831
  Transmission Date: 20100115
  Serious: Yes (Death)
  Sender: FDA-Public Use
  Company Number: KR-PFIZER INC-2009262167

PATIENT
  Age: 44 Year

DRUGS (6)
  1. VORICONAZOLE [Suspect]
     Indication: ASPERGILLOSIS
     Dosage: 200 MG, 2X/DAY
     Route: 042
     Dates: start: 20060223, end: 20060302
  2. MAGNESIUM OXIDE [Concomitant]
     Indication: CONSTIPATION
     Dosage: 250 MG, 3X/DAY
     Route: 048
     Dates: start: 20051111, end: 20060225
  3. ACETYLCYSTEINE [Concomitant]
     Indication: PRODUCTIVE COUGH
     Dosage: 200 MG, 3X/DAY
     Route: 048
     Dates: start: 20050830, end: 20060225
  4. LACTULOSE [Concomitant]
     Indication: CONSTIPATION
     Dosage: 30 ML, 3X/DAY
     Route: 048
     Dates: start: 20050910, end: 20060224
  5. MOSAPRIDE [Concomitant]
     Indication: GASTROINTESTINAL DISORDER
     Dosage: 5 MG, 3X/DAY
     Route: 048
     Dates: start: 20060216, end: 20060225
  6. URSODEOXYCHOLIC ACID [Concomitant]
     Indication: LIVER FUNCTION TEST ABNORMAL
     Dosage: 200 MG, 3X/DAY
     Route: 048
     Dates: start: 20051218, end: 20060225

REACTIONS (1)
  - DEATH [None]
